FAERS Safety Report 12387236 (Version 3)
Quarter: 2016Q3

REPORT INFORMATION
  Report Type: Spontaneous
  Country: FR (occurrence: FR)
  Receive Date: 20160519
  Receipt Date: 20160706
  Transmission Date: 20161109
  Serious: Yes (Death, Other)
  Sender: FDA-Public Use
  Company Number: FR-ABBVIE-16P-056-1633004-00

PATIENT
  Sex: Female

DRUGS (1)
  1. DEPAKINE [Suspect]
     Active Substance: VALPROATE SODIUM
     Indication: MATERNAL EXPOSURE TIMING UNSPECIFIED
     Route: 064

REACTIONS (10)
  - Foetal distress syndrome [Unknown]
  - Dilatation ventricular [Unknown]
  - Paraplegia [Fatal]
  - Spina bifida [Fatal]
  - Meningomyelocele [Fatal]
  - Kyphosis [Fatal]
  - Talipes [Fatal]
  - Bone development abnormal [Fatal]
  - Neonatal aspiration [Unknown]
  - Foetal exposure during pregnancy [Unknown]

NARRATIVE: CASE EVENT DATE: 19810405
